FAERS Safety Report 24120608 (Version 1)
Quarter: 2024Q3

REPORT INFORMATION
  Report Type: Spontaneous
  Country: US (occurrence: US)
  Receive Date: 20240722
  Receipt Date: 20240722
  Transmission Date: 20241016
  Serious: No
  Sender: CSL BEHRING
  Company Number: US-BEH-2024175320

PATIENT
  Sex: Male

DRUGS (9)
  1. ZEMAIRA [Suspect]
     Active Substance: .ALPHA.1-PROTEINASE INHIBITOR HUMAN
     Indication: Weight decreased
     Dosage: 60 MG/KG, QW
     Route: 042
     Dates: start: 2024
  2. Aspirin chemipharm [Concomitant]
  3. CALCIUM\VITAMIN D [Concomitant]
     Active Substance: CALCIUM\VITAMIN D
  4. DEXTROMETHORF [Concomitant]
  5. LYSINE HCL [Concomitant]
  6. VITAMINS [Concomitant]
     Active Substance: VITAMINS
  7. STIOLTO RESPIMAT [Concomitant]
     Active Substance: OLODATEROL HYDROCHLORIDE\TIOTROPIUM BROMIDE MONOHYDRATE
  8. VITAMIN B [Concomitant]
     Active Substance: VITAMIN B
  9. ZINC [Concomitant]
     Active Substance: ZINC

REACTIONS (2)
  - Fatigue [Recovered/Resolved]
  - Off label use [Unknown]
